APPROVED DRUG PRODUCT: BICILLIN
Active Ingredient: PENICILLIN G BENZATHINE
Strength: 300,000 UNITS/5ML
Dosage Form/Route: SUSPENSION;ORAL
Application: N050126 | Product #002
Applicant: WYETH AYERST LABORATORIES
Approved: Approved Prior to Jan 1, 1982 | RLD: No | RS: No | Type: DISCN